FAERS Safety Report 4477046-0 (Version None)
Quarter: 2004Q4

REPORT INFORMATION
  Report Type: 
  Country: None (occurrence: None)
  Receive Date: 20041018
  Receipt Date: 20041011
  Transmission Date: 20050328
  Serious: Yes (Hospitalization)
  Sender: FDA-Public Use
  Company Number: US-BRISTOL-MYERS SQUIBB COMPANY-12727780

PATIENT
  Age: 42 Year
  Sex: Male
  Weight: 86 kg

DRUGS (6)
  1. EFAVIRENZ TABS [Suspect]
     Indication: HIV INFECTION
     Route: 048
     Dates: start: 20031007
  2. EMTRICITABINE [Suspect]
     Indication: HIV INFECTION
     Route: 048
     Dates: start: 20031007
  3. TENOFOVIR DISOPROXIL FUMARATE [Suspect]
     Indication: HIV INFECTION
     Route: 048
     Dates: start: 20031007
  4. OMEPRAZOLE [Concomitant]
     Indication: GASTROOESOPHAGEAL REFLUX DISEASE
     Dates: start: 20010101
  5. ECHINACEA [Concomitant]
     Dates: start: 20020901
  6. ASCORBIC ACID [Concomitant]
     Dates: start: 20020901

REACTIONS (2)
  - CHOLECYSTECTOMY [None]
  - SPLENECTOMY [None]
